FAERS Safety Report 14670920 (Version 1)
Quarter: 2018Q1

REPORT INFORMATION
  Report Type: Spontaneous
  Country: US (occurrence: US)
  Receive Date: 20180321
  Receipt Date: 20180321
  Transmission Date: 20180509
  Serious: Yes (Hospitalization)
  Sender: FDA-Public Use
  Company Number: None

PATIENT
  Age: 5 Year
  Sex: Male
  Weight: 14.8 kg

DRUGS (5)
  1. VINCRISTINE SULFATE. [Suspect]
     Active Substance: VINCRISTINE SULFATE
     Dates: end: 20180302
  2. CYTARABINE. [Suspect]
     Active Substance: CYTARABINE
     Dates: end: 20180216
  3. DEXAMETHASONE. [Suspect]
     Active Substance: DEXAMETHASONE
     Dates: end: 20180315
  4. ONCASPAR [Suspect]
     Active Substance: PEGASPARGASE
     Dates: end: 20180219
  5. METHOTREXATE. [Suspect]
     Active Substance: METHOTREXATE
     Dates: end: 20180223

REACTIONS (11)
  - Hypotension [None]
  - Pyrexia [None]
  - Stress [None]
  - Respiratory failure [None]
  - Liver function test abnormal [None]
  - Liver injury [None]
  - Blood culture positive [None]
  - Ammonia increased [None]
  - Neutropenia [None]
  - Pseudomonas test positive [None]
  - Ileus [None]

NARRATIVE: CASE EVENT DATE: 20180307
